FAERS Safety Report 26183414 (Version 1)
Quarter: 2025Q4

REPORT INFORMATION
  Report Type: Spontaneous
  Country: US (occurrence: US)
  Receive Date: 20251221
  Receipt Date: 20251221
  Transmission Date: 20260118
  Serious: No
  Sender: SANOFI AVENTIS
  Company Number: US-SA-2025SA376577

PATIENT
  Sex: Female
  Weight: 91.59 kg

DRUGS (7)
  1. DUPIXENT [Suspect]
     Active Substance: DUPILUMAB
     Indication: Eosinophilic oesophagitis
     Dosage: 300 MG, QW
     Route: 058
     Dates: end: 2025
  2. OMEPRAZOLE [Concomitant]
     Active Substance: OMEPRAZOLE
  3. MONTELUKAST SODIUM [Concomitant]
     Active Substance: MONTELUKAST SODIUM
  4. METHYLCOBALAMIN [Concomitant]
     Active Substance: METHYLCOBALAMIN
  5. PROGESTERONE [Concomitant]
     Active Substance: PROGESTERONE
  6. XARELTO [Concomitant]
     Active Substance: RIVAROXABAN
  7. TIRZEPATIDE [Concomitant]
     Active Substance: TIRZEPATIDE

REACTIONS (4)
  - Weight increased [Unknown]
  - Fluid retention [Recovering/Resolving]
  - Pollakiuria [Unknown]
  - Upper respiratory tract infection [Unknown]
